FAERS Safety Report 18987893 (Version 1)
Quarter: 2021Q1

REPORT INFORMATION
  Report Type: Report from Study
  Country: US (occurrence: US)
  Receive Date: 20210309
  Receipt Date: 20210309
  Transmission Date: 20210420
  Serious: Yes (Hospitalization, Other)
  Sender: FDA-Public Use
  Company Number: US-JNJFOC-A-NJ2019-198076

PATIENT
  Age: 53 Year
  Sex: Female
  Weight: 83.9 kg

DRUGS (5)
  1. UPTRAVI [Suspect]
     Active Substance: SELEXIPAG
     Indication: PULMONARY ARTERIAL HYPERTENSION
     Dosage: 1000 MCG, BID
     Route: 048
  2. TADALAFIL. [Concomitant]
     Active Substance: TADALAFIL
  3. SYNTHROID [Concomitant]
     Active Substance: LEVOTHYROXINE SODIUM
     Dosage: 50 MCG, QD
  4. ELIQUIS [Concomitant]
     Active Substance: APIXABAN
  5. BOSENTAN. [Concomitant]
     Active Substance: BOSENTAN

REACTIONS (14)
  - Neck pain [Unknown]
  - Back pain [Unknown]
  - Abdominal discomfort [Recovered/Resolved]
  - Hospitalisation [Unknown]
  - Urinary tract infection [Unknown]
  - Dyspnoea [Unknown]
  - Chest pain [Unknown]
  - Pulmonary hypertension [Unknown]
  - Renal disorder [Unknown]
  - Bacterial infection [Unknown]
  - Myocardial necrosis marker increased [Unknown]
  - Faeces hard [Recovered/Resolved]
  - Constipation [Recovered/Resolved]
  - Vitamin D decreased [Unknown]
